FAERS Safety Report 7628599-2 (Version None)
Quarter: 2011Q3

REPORT INFORMATION
  Report Type: 
  Country: None (occurrence: None)
  Receive Date: 20110722
  Receipt Date: 20110720
  Transmission Date: 20111222
  Serious: Yes (Other)
  Sender: FDA-Public Use
  Company Number: BR-SANOFI-AVENTIS-2011SA041843

PATIENT
  Age: 63 Year
  Sex: Male
  Weight: 86 kg

DRUGS (10)
  1. LOSARTAN POTASSIUM [Concomitant]
     Route: 048
  2. REGULAR INSULIN [Concomitant]
     Indication: TYPE 2 DIABETES MELLITUS
     Route: 058
     Dates: start: 20100801
  3. LANTUS [Suspect]
     Indication: TYPE 2 DIABETES MELLITUS
     Dosage: 20 IU AT NIGHT AND 34 IU IN THE MORNING
     Route: 058
  4. HYDRALAZINE HCL [Concomitant]
     Indication: HYPERTENSION
     Route: 048
  5. CLONIDINE HYDROCHLORIDE [Concomitant]
     Indication: HYPERTENSION
     Route: 048
  6. ALL OTHER THERAPEUTIC PRODUCTS [Concomitant]
     Route: 048
  7. DEXAMETHASONE [Concomitant]
     Indication: AMYLOIDOSIS
  8. SIMVASTATIN [Concomitant]
     Route: 048
  9. ENALAPRIL MALEATE [Concomitant]
     Route: 048
  10. BACTRIM [Concomitant]
     Route: 048

REACTIONS (6)
  - INJECTION SITE REACTION [None]
  - DRUG INEFFECTIVE [None]
  - HYPERGLYCAEMIA [None]
  - PROTEINURIA [None]
  - AMYLOIDOSIS [None]
  - RENAL DISORDER [None]
